FAERS Safety Report 7301123-X (Version None)
Quarter: 2011Q1

REPORT INFORMATION
  Report Type: 
  Country: None (occurrence: None)
  Receive Date: 20110218
  Receipt Date: 20101130
  Transmission Date: 20110831
  Serious: Yes (Disabling)
  Sender: FDA-Public Use
  Company Number: IE-BAYER-201044197GPV

PATIENT
  Sex: Female

DRUGS (15)
  1. SERETIDE [Concomitant]
     Indication: ASTHMA
     Dosage: 1 MG (DAILY DOSE), BID,
  2. CORTICOSTEROIDS [Concomitant]
     Indication: ECZEMA
     Route: 061
  3. VALTREX [Concomitant]
     Dosage: 1 G (DAILY DOSE), BID,
     Dates: start: 20100513
  4. VALTREX [Concomitant]
     Dosage: 1 G (DAILY DOSE), BID,
     Dates: start: 20100619
  5. VALTREX [Concomitant]
     Dates: start: 20100629
  6. VENTOLIN [Concomitant]
     Indication: ASTHMA
  7. DECAPEPTYL SR [Concomitant]
     Dates: start: 20100629
  8. DIANETTE [Concomitant]
     Dates: start: 20100622
  9. DIANETTE [Concomitant]
     Dates: start: 20100622
  10. MIRENA [Suspect]
     Indication: ENDOMETRIOSIS
     Dosage: 20 ?G (DAILY DOSE), CONT, INTRA-UTERINE
     Route: 015
     Dates: start: 20100401
  11. SALMETEROL XINAFOATE [Concomitant]
     Indication: ASTHMA
     Dosage: 1 MG (DAILY DOSE), BID,
  12. VALTREX [Concomitant]
     Dosage: 1 G (DAILY DOSE), BID,
     Dates: start: 20100619
  13. FLUTICASONE PROPIONATE [Concomitant]
     Indication: ASTHMA
     Dosage: 1 MG (DAILY DOSE), BID,
  14. VALTREX [Concomitant]
     Dates: start: 20100629
  15. DIANETTE [Concomitant]
     Dates: start: 20100513

REACTIONS (1)
  - CONSTIPATION [None]
